FAERS Safety Report 7310783-9 (Version None)
Quarter: 2011Q1

REPORT INFORMATION
  Report Type: 
  Country: None (occurrence: None)
  Receive Date: 20110224
  Receipt Date: 20110129
  Transmission Date: 20110831
  Serious: No
  Sender: FDA-Public Use
  Company Number: US-B.I. PHARMACEUTICALS,INC./RIDGEFIELD-2011-BP-03033BP

PATIENT
  Age: 54 Year
  Sex: Male

DRUGS (3)
  1. LEVOXYL [Concomitant]
     Indication: HYPOTHYROIDISM
  2. PRADAXA [Suspect]
     Indication: ATRIAL FIBRILLATION
     Dosage: 300 MG
     Route: 048
     Dates: start: 20110126
  3. METOPROLOL [Concomitant]
     Indication: ATRIAL FIBRILLATION

REACTIONS (3)
  - DIARRHOEA [None]
  - MUSCLE SPASMS [None]
  - ABDOMINAL PAIN [None]
